FAERS Safety Report 5845000-X (Version None)
Quarter: 2008Q3

REPORT INFORMATION
  Report Type: 
  Country: None (occurrence: None)
  Receive Date: 20080814
  Receipt Date: 20080804
  Transmission Date: 20090109
  Serious: Yes (Death, Hospitalization)
  Sender: FDA-Public Use
  Company Number: US-ROCHE-573357

PATIENT
  Sex: Male

DRUGS (14)
  1. MYCOPHENOLATE MOFETIL [Suspect]
     Route: 065
     Dates: start: 20060306
  2. CONTRAST DYE [Suspect]
     Route: 042
     Dates: start: 20080619, end: 20080619
  3. GENGRAF [Concomitant]
     Dosage: DRUG REPORTED AS GENGRAFT
  4. PLAVIX [Concomitant]
  5. NEURONTIN [Concomitant]
  6. PREDNISONE TAB [Concomitant]
  7. REGLAN [Concomitant]
  8. BIAXIN [Concomitant]
  9. PROTONIX [Concomitant]
  10. COREG [Concomitant]
  11. MINOXIDIL [Concomitant]
  12. CLONIDINE [Concomitant]
     Dosage: DRUG REPORTED AS CLINODINE
  13. ASPIRIN [Concomitant]
  14. VERAPAMIL [Concomitant]

REACTIONS (8)
  - ACUTE MYOCARDIAL INFARCTION [None]
  - CARDIO-RESPIRATORY ARREST [None]
  - CORONARY ARTERY DISEASE [None]
  - HYPERTENSIVE CRISIS [None]
  - LEFT VENTRICULAR DYSFUNCTION [None]
  - NODAL ARRHYTHMIA [None]
  - RENAL FAILURE ACUTE [None]
  - THROMBOSIS IN DEVICE [None]
